FAERS Safety Report 24889728 (Version 1)
Quarter: 2025Q1

REPORT INFORMATION
  Report Type: Spontaneous
  Country: US (occurrence: None)
  Receive Date: 20250124
  Receipt Date: 20250124
  Transmission Date: 20250409
  Serious: Yes (unspecified)
  Sender: FDA-CTU
  Company Number: None

PATIENT
  Age: 81 Year
  Sex: Female
  Weight: 67.5 kg

DRUGS (8)
  1. REPATHA [Suspect]
     Active Substance: EVOLOCUMAB
     Indication: Angina pectoris
     Route: 050
     Dates: start: 20241010, end: 20250124
  2. CARVEDILOL [Concomitant]
     Active Substance: CARVEDILOL
  3. ATORVASTATIN [Concomitant]
     Active Substance: ATORVASTATIN
  4. REPATHA [Concomitant]
     Active Substance: EVOLOCUMAB
  5. VITAMINS [Concomitant]
     Active Substance: VITAMINS
  6. Magnesium, [Concomitant]
  7. D4 [Concomitant]
  8. 81mg aspirin [Concomitant]

REACTIONS (1)
  - Influenza [None]

NARRATIVE: CASE EVENT DATE: 20250121
